FAERS Safety Report 16768495 (Version 6)
Quarter: 2020Q1

REPORT INFORMATION
  Report Type: Spontaneous
  Country: US (occurrence: US)
  Receive Date: 20190903
  Receipt Date: 20200219
  Transmission Date: 20200409
  Serious: Yes (Hospitalization)
  Sender: FDA-Public Use
  Company Number: US-AMGEN-USASP2019134668

PATIENT
  Age: 37 Year
  Sex: Male
  Weight: 134 kg

DRUGS (12)
  1. EPOGEN [Suspect]
     Active Substance: ERYTHROPOIETIN
     Dosage: 10000 UNIT, Q3WK
     Route: 042
  2. EPOGEN [Suspect]
     Active Substance: ERYTHROPOIETIN
     Dosage: 10000 UNIT
     Route: 042
     Dates: start: 201908, end: 201909
  3. OXYCODONE [Concomitant]
     Active Substance: OXYCODONE
     Indication: PAIN
     Dosage: 40 MILLIGRAM, Q12H, THEN 10 MILLIGRAM, Q4H, IR AND THEN 80 MILLIGRAM, Q12H
     Route: 065
  4. EPOGEN [Suspect]
     Active Substance: ERYTHROPOIETIN
     Dosage: 12000 UNIT, Q3WK
     Route: 042
     Dates: start: 20191025
  5. FOLATE [Concomitant]
     Active Substance: FOLATE SODIUM
     Indication: SICKLE CELL DISEASE
     Dosage: 1 MILLIGRAM, QD
     Route: 065
  6. CALCIUM ACETATE. [Concomitant]
     Active Substance: CALCIUM ACETATE
     Indication: END STAGE RENAL DISEASE
     Dosage: 667 MILLIGRAM, TID
     Route: 065
  7. NORVASC [Concomitant]
     Active Substance: AMLODIPINE BESYLATE
     Indication: BLOOD PRESSURE ABNORMAL
     Dosage: 10 MILLIGRAM, QD
     Route: 065
  8. COREG [Concomitant]
     Active Substance: CARVEDILOL
     Indication: BLOOD PRESSURE ABNORMAL
     Dosage: 12.5 MILLIGRAM, Q12H
     Route: 065
  9. EPOGEN [Suspect]
     Active Substance: ERYTHROPOIETIN
     Indication: NEPHROGENIC ANAEMIA
     Dosage: 20000 UNIT, Q3WK
     Route: 042
     Dates: start: 201510
  10. XANAX [Concomitant]
     Active Substance: ALPRAZOLAM
     Indication: ANXIETY
     Dosage: 1 MILLIGRAM, BID
     Route: 065
  11. EPOGEN [Suspect]
     Active Substance: ERYTHROPOIETIN
     Dosage: 20000 UNIT
     Route: 042
     Dates: start: 201904, end: 201907
  12. RETACRIT [Suspect]
     Active Substance: EPOETIN ALFA-EPBX
     Indication: BLOOD ERYTHROPOIETIN DECREASED
     Dosage: 12000-20000 UNITS
     Route: 042
     Dates: start: 201907, end: 201910

REACTIONS (5)
  - Electrolyte imbalance [Unknown]
  - Arthralgia [Unknown]
  - Sickle cell anaemia [Unknown]
  - Back pain [Unknown]
  - Drug ineffective [Unknown]

NARRATIVE: CASE EVENT DATE: 2018
